FAERS Safety Report 8231588-0 (Version None)
Quarter: 2012Q1

REPORT INFORMATION
  Report Type: 
  Country: None (occurrence: None)
  Receive Date: 20120323
  Receipt Date: 20120312
  Transmission Date: 20120608
  Serious: Yes (Other)
  Sender: FDA-Public Use
  Company Number: GB-CELGENEUS-167-21880-12031296

PATIENT
  Age: 64 Year
  Sex: Male

DRUGS (3)
  1. REVLIMID [Suspect]
     Route: 048
     Dates: start: 20101001, end: 20120101
  2. DEXAMETHASONE [Concomitant]
     Route: 065
  3. ENOXAPARIN [Concomitant]
     Route: 065

REACTIONS (1)
  - BILE DUCT CANCER [None]
